FAERS Safety Report 25345357 (Version 1)
Quarter: 2025Q2

REPORT INFORMATION
  Report Type: Spontaneous
  Country: US (occurrence: US)
  Receive Date: 20250522
  Receipt Date: 20250522
  Transmission Date: 20250716
  Serious: No
  Sender: STALLERGENES
  Company Number: US-STALCOR-2025-AER-00889

PATIENT
  Age: 13 Year
  Sex: Male

DRUGS (1)
  1. PALFORZIA [Suspect]
     Active Substance: PEANUT
     Indication: Food allergy
     Dosage: 300MG: MAINTENANCE: MIX CONTENTS OF 1 SACHET WELL WITH SEMISOLID FOOD AS DIRECTED AND CONSUME ONCE D
     Route: 048

REACTIONS (2)
  - Pyrexia [Not Recovered/Not Resolved]
  - Product dose omission issue [Not Recovered/Not Resolved]
